FAERS Safety Report 6509676-6 (Version None)
Quarter: 2009Q4

REPORT INFORMATION
  Report Type: 
  Country: None (occurrence: None)
  Receive Date: 20091222
  Receipt Date: 20091216
  Transmission Date: 20100525
  Serious: Yes (Disabling)
  Sender: FDA-Public Use
  Company Number: FR-SANOFI-AVENTIS-2009SA009242

PATIENT
  Age: 69 Year
  Sex: Male

DRUGS (4)
  1. AMAREL [Suspect]
     Indication: TYPE 2 DIABETES MELLITUS
     Route: 048
     Dates: end: 20090818
  2. GEMCITABINE [Suspect]
     Indication: MIXED HEPATOCELLULAR CHOLANGIOCARCINOMA
     Dosage: DOSE:38 MILLIGRAM(S)/MILLILITRE
     Route: 042
     Dates: start: 20090520, end: 20090814
  3. FENOFIBRATE [Concomitant]
  4. FOZITEC [Concomitant]

REACTIONS (2)
  - EXTREMITY NECROSIS [None]
  - ISCHAEMIA [None]
